FAERS Safety Report 10412101 (Version 2)
Quarter: 2014Q3

REPORT INFORMATION
  Report Type: Spontaneous
  Country: FI (occurrence: FI)
  Receive Date: 20140827
  Receipt Date: 20140904
  Transmission Date: 20150326
  Serious: Yes (Hospitalization, Other)
  Sender: FDA-Public Use
  Company Number: FI-JNJFOC-20140818482

PATIENT
  Age: 45 Year
  Sex: Male
  Weight: 108 kg

DRUGS (8)
  1. XARELTO [Suspect]
     Active Substance: RIVAROXABAN
     Indication: EMBOLISM
     Route: 048
     Dates: start: 20140605
  2. EMGESAN [Concomitant]
     Route: 065
  3. SOMAC [Concomitant]
     Active Substance: PANTOPRAZOLE SODIUM
     Route: 065
  4. CARDACE [Concomitant]
     Active Substance: RAMIPRIL
     Route: 065
  5. XARELTO [Suspect]
     Active Substance: RIVAROXABAN
     Indication: THROMBOSIS
     Route: 048
     Dates: start: 20140605
  6. XARELTO [Suspect]
     Active Substance: RIVAROXABAN
     Indication: EMBOLISM VENOUS
     Route: 048
     Dates: start: 20140605
  7. MAGNESIUM [Suspect]
     Active Substance: MAGNESIUM
     Indication: PRODUCT USED FOR UNKNOWN INDICATION
     Route: 065
     Dates: start: 20140619
  8. BISOPROLOL [Concomitant]
     Active Substance: BISOPROLOL
     Route: 065
     Dates: start: 20140619

REACTIONS (10)
  - Deep vein thrombosis [Unknown]
  - Coagulopathy [Unknown]
  - Vomiting [Unknown]
  - Pulmonary embolism [Unknown]
  - Embolism [Unknown]
  - Pain in extremity [Unknown]
  - Thrombophlebitis superficial [Unknown]
  - Peripheral swelling [Unknown]
  - Ventricular tachycardia [Unknown]
  - Oesophageal neoplasm [Unknown]

NARRATIVE: CASE EVENT DATE: 2014
